FAERS Safety Report 7623974-4 (Version None)
Quarter: 2011Q3

REPORT INFORMATION
  Report Type: 
  Country: None (occurrence: None)
  Receive Date: 20110720
  Receipt Date: 20110513
  Transmission Date: 20111222
  Serious: No
  Sender: FDA-Public Use
  Company Number: US-BRISTOL-MYERS SQUIBB COMPANY-15744923

PATIENT
  Age: 81 Year
  Sex: Male
  Weight: 102 kg

DRUGS (6)
  1. MEVACOR [Concomitant]
  2. XANAX [Concomitant]
  3. EYE DROPS [Concomitant]
  4. MOBIC [Concomitant]
  5. ASPIRIN [Concomitant]
  6. YERVOY [Suspect]
     Indication: MALIGNANT MELANOMA
     Dates: start: 20110422

REACTIONS (1)
  - RASH [None]
